FAERS Safety Report 25772062 (Version 1)
Quarter: 2025Q3

REPORT INFORMATION
  Report Type: Spontaneous
  Country: US (occurrence: US)
  Receive Date: 20250908
  Receipt Date: 20250908
  Transmission Date: 20251021
  Serious: Yes (Death, Hospitalization)
  Sender: DAIICHI
  Company Number: US-DAIICHI SANKYO, INC.-DS-2025-163214-US

PATIENT
  Age: 48 Year
  Sex: Male

DRUGS (1)
  1. VANFLYTA [Suspect]
     Active Substance: QUIZARTINIB DIHYDROCHLORIDE
     Indication: Acute myeloid leukaemia
     Dosage: 53 MG, QD
     Route: 048
     Dates: start: 20250207, end: 20250825

REACTIONS (1)
  - Death [Fatal]

NARRATIVE: CASE EVENT DATE: 20250825
